FAERS Safety Report 7955937-3 (Version None)
Quarter: 2011Q4

REPORT INFORMATION
  Report Type: 
  Country: None (occurrence: None)
  Receive Date: 20111205
  Receipt Date: 20111130
  Transmission Date: 20120403
  Serious: No
  Sender: FDA-Public Use
  Company Number: US-BIOGENIDEC-2011BI045394

PATIENT
  Sex: Female

DRUGS (1)
  1. TYSABRI [Suspect]
     Indication: MULTIPLE SCLEROSIS
     Route: 042
     Dates: start: 20100903

REACTIONS (7)
  - GENERAL SYMPTOM [None]
  - HYPERSENSITIVITY [None]
  - SOMNOLENCE [None]
  - ANGER [None]
  - MEMORY IMPAIRMENT [None]
  - HYPERSOMNIA [None]
  - FATIGUE [None]
